FAERS Safety Report 8509916-8 (Version None)
Quarter: 2012Q3

REPORT INFORMATION
  Report Type: 
  Country: None (occurrence: None)
  Receive Date: 20120713
  Receipt Date: 20120711
  Transmission Date: 20120928
  Serious: Yes (Death, Hospitalization)
  Sender: FDA-Public Use
  Company Number: US-MILLENNIUM PHARMACEUTICALS, INC.-2012-04847

PATIENT
  Age: 2 Year
  Sex: Female
  Weight: 14 kg

DRUGS (9)
  1. DAUNORUBICIN HYDROCHLORIDE [Suspect]
     Indication: ACUTE MYELOID LEUKAEMIA
     Dosage: 50 MG/M2, CYCLIC
     Route: 042
     Dates: start: 20120709, end: 20120709
  2. ANTIBIOTICS [Concomitant]
     Indication: PYREXIA
  3. ANTIBIOTICS [Concomitant]
     Indication: LYMPHADENITIS
  4. VELCADE [Suspect]
     Indication: ACUTE MYELOID LEUKAEMIA
     Dosage: 1.3 MG/M2, CYCLIC
     Route: 040
     Dates: start: 20120709, end: 20120709
  5. ETOPOSIDE [Suspect]
     Indication: ACUTE MYELOID LEUKAEMIA
     Dosage: 100 MG/M2, CYCLIC
     Route: 042
     Dates: start: 20120709, end: 20120709
  6. ANTIBIOTICS [Concomitant]
     Indication: WHITE BLOOD CELL COUNT INCREASED
  7. CYTARABINE [Suspect]
     Indication: ACUTE MYELOID LEUKAEMIA
     Dosage: 100 MG/M2, CYCLIC
     Route: 042
     Dates: start: 20120709, end: 20120710
  8. DEXAMETHASONE [Concomitant]
     Indication: PRODUCT USED FOR UNKNOWN INDICATION
     Dosage: UNK
     Dates: start: 20120708, end: 20120709
  9. CYTARABINE [Suspect]
     Dosage: UNK
     Route: 037
     Dates: start: 20120709, end: 20120710

REACTIONS (1)
  - LEUKOCYTOSIS [None]
